FAERS Safety Report 4415612-9 (Version None)
Quarter: 2004Q2

REPORT INFORMATION
  Report Type: 
  Country: None (occurrence: None)
  Receive Date: 20040621
  Receipt Date: 20031201
  Transmission Date: 20050107
  Serious: Yes (Death)
  Sender: FDA-Public Use
  Company Number: USA-2003-0011838

PATIENT
  Age: 26 Year
  Sex: Male
  Weight: 113.8 kg

DRUGS (6)
  1. OXYCODONE HCL [Suspect]
  2. MORPHINE SULFATE [Suspect]
  3. HYDROCODONE BITARTRATE [Suspect]
  4. CODEINE (CODEINE) [Suspect]
  5. ACETAMINOPHEN [Suspect]
  6. QUININE (QUININE) [Suspect]

REACTIONS (1)
  - ACCIDENTAL OVERDOSE [None]
